FAERS Safety Report 6401887-3 (Version None)
Quarter: 2009Q4

REPORT INFORMATION
  Report Type: 
  Country: None (occurrence: None)
  Receive Date: 20091013
  Receipt Date: 20091013
  Transmission Date: 20100525
  Serious: Yes (Life-Threatening)
  Sender: FDA-Public Use
  Company Number: None

PATIENT
  Age: 50 Year
  Sex: Female
  Weight: 65.7716 kg

DRUGS (1)
  1. SEPTOCAINE [Suspect]
     Indication: TOOTH REPAIR
     Dosage: 2 INJECTIIONS TO PREPARE TOOTH ONCE DENTAL
     Route: 004
     Dates: start: 20091008, end: 20091008

REACTIONS (9)
  - APHONIA [None]
  - DYSPHAGIA [None]
  - FEAR [None]
  - HEART RATE INCREASED [None]
  - HYPERTENSION [None]
  - MUSCULOSKELETAL DISORDER [None]
  - MUSCULOSKELETAL PAIN [None]
  - SWOLLEN TONGUE [None]
  - THROAT TIGHTNESS [None]
